FAERS Safety Report 15154478 (Version 1)
Quarter: 2018Q3

REPORT INFORMATION
  Report Type: Spontaneous
  Country: BR (occurrence: BR)
  Receive Date: 20180717
  Receipt Date: 20180717
  Transmission Date: 20181010
  Serious: Yes (Disabling)
  Sender: FDA-Public Use
  Company Number: BR-PFIZER INC-2018281418

PATIENT
  Age: 61 Year
  Sex: Female

DRUGS (1)
  1. TALIGLUCERASE ALFA [Suspect]
     Active Substance: TALIGLUCERASE ALFA
     Indication: GAUCHER^S DISEASE TYPE I
     Dosage: 14 IU/KG, EVERY 15 DAYS
     Route: 042
     Dates: start: 2010

REACTIONS (3)
  - Arthralgia [Unknown]
  - Dizziness [Unknown]
  - Bone pain [Unknown]
